FAERS Safety Report 8321166-7 (Version None)
Quarter: 2012Q2

REPORT INFORMATION
  Report Type: 
  Country: None (occurrence: None)
  Receive Date: 20120430
  Receipt Date: 20120419
  Transmission Date: 20120825
  Serious: Yes (Other)
  Sender: FDA-Public Use
  Company Number: US-JNJFOC-20120409801

PATIENT
  Age: 4 Year
  Sex: Female
  Weight: 17 kg

DRUGS (6)
  1. RISPERIDONE [Suspect]
     Indication: AUTISM
     Route: 065
  2. FENTANYL CITRATE [Interacting]
     Indication: ANAESTHESIA
     Route: 042
  3. NITROUS OXIDE [Suspect]
     Indication: ANAESTHESIA
     Route: 055
  4. SEVOFLURANE [Suspect]
     Route: 055
  5. SEVOFLURANE [Suspect]
     Indication: ANAESTHESIA
     Route: 055
  6. PROPOFOL [Suspect]
     Indication: ANAESTHESIA
     Route: 065

REACTIONS (2)
  - TRISMUS [None]
  - DRUG INTERACTION [None]
